FAERS Safety Report 15989546 (Version 1)
Quarter: 2019Q1

REPORT INFORMATION
  Report Type: Spontaneous
  Country: US (occurrence: US)
  Receive Date: 20190221
  Receipt Date: 20190221
  Transmission Date: 20190418
  Serious: No
  Sender: FDA-Public Use
  Company Number: US-PFIZER INC-2019073267

PATIENT
  Age: 62 Year
  Sex: Female

DRUGS (1)
  1. LYRICA [Suspect]
     Active Substance: PREGABALIN
     Dosage: 400 MG, DAILY [QTY 60 / DAY SUPPLY 30]

REACTIONS (3)
  - Feeling abnormal [Unknown]
  - Withdrawal syndrome [Unknown]
  - Neuralgia [Unknown]
